FAERS Safety Report 6492227-2 (Version None)
Quarter: 2009Q4

REPORT INFORMATION
  Report Type: 
  Country: None (occurrence: None)
  Receive Date: 20091214
  Receipt Date: 20091130
  Transmission Date: 20100525
  Serious: Yes (Death, Hospitalization, Other)
  Sender: FDA-Public Use
  Company Number: ES-JNJFOC-20091200225

PATIENT
  Age: 50 Year
  Sex: Male

DRUGS (3)
  1. INFLIXIMAB [Suspect]
     Indication: CROHN'S DISEASE
     Dosage: TOTAL OF 6 DOSES
     Route: 042
  2. AZATHIOPRINE [Suspect]
     Indication: CROHN'S DISEASE
  3. SALICYLATES NOS [Concomitant]
     Indication: CROHN'S DISEASE

REACTIONS (5)
  - ANAEMIA [None]
  - PLASMACYTOMA [None]
  - RENAL FAILURE ACUTE [None]
  - SEPSIS [None]
  - TUMOUR LYSIS SYNDROME [None]
